FAERS Safety Report 4602269-7 (Version None)
Quarter: 2005Q1

REPORT INFORMATION
  Report Type: 
  Country: None (occurrence: None)
  Receive Date: 20050201
  Receipt Date: 20040617
  Transmission Date: 20050727
  Serious: Yes (Other)
  Sender: FDA-Public Use
  Company Number: 200418435BWH

PATIENT
  Age: 22 Year
  Sex: Female
  Weight: 64.4108 kg

DRUGS (1)
  1. AVELOX [Suspect]
     Indication: SINUSITIS
     Dosage: 400 MG, TOTAL DAILY, ORAL
     Route: 048
     Dates: start: 20040616

REACTIONS (6)
  - ANAPHYLACTIC REACTION [None]
  - DYSPHAGIA [None]
  - DYSPNOEA [None]
  - OROPHARYNGEAL SWELLING [None]
  - PRURITUS [None]
  - URTICARIA [None]
